FAERS Safety Report 6196309-4 (Version None)
Quarter: 2009Q2

REPORT INFORMATION
  Report Type: 
  Country: None (occurrence: None)
  Receive Date: 20090520
  Receipt Date: 20090512
  Transmission Date: 20091009
  Serious: Yes (Other)
  Sender: FDA-Public Use
  Company Number: AU-PFIZER INC-2009206734

PATIENT
  Age: 61 Year

DRUGS (1)
  1. HEPARIN [Suspect]
     Indication: THROMBOSIS PROPHYLAXIS
     Dosage: 27000 UNITS OVER 6 HOURS
     Route: 042
     Dates: start: 20090430, end: 20090430

REACTIONS (1)
  - UNEVALUABLE EVENT [None]
